FAERS Safety Report 14656291 (Version 1)
Quarter: 2018Q1

REPORT INFORMATION
  Report Type: Spontaneous
  Country: US (occurrence: US)
  Receive Date: 20180319
  Receipt Date: 20180319
  Transmission Date: 20180509
  Serious: Yes (Hospitalization)
  Sender: FDA-Public Use
  Company Number: US-SA-2018SA077545

PATIENT
  Age: 67 Year
  Sex: Female

DRUGS (2)
  1. ALIROCUMAB PREFILLED PEN [Suspect]
     Active Substance: ALIROCUMAB
     Indication: BLOOD CHOLESTEROL
     Dates: start: 201702
  2. PRALUENT [Suspect]
     Active Substance: ALIROCUMAB
     Indication: BLOOD CHOLESTEROL
     Route: 058
     Dates: start: 201702

REACTIONS (5)
  - Myocardial infarction [Unknown]
  - Injection site bruising [Unknown]
  - Injection site discomfort [Unknown]
  - Underdose [Unknown]
  - Device use issue [Unknown]

NARRATIVE: CASE EVENT DATE: 20180220
